FAERS Safety Report 22613661 (Version 1)
Quarter: 2023Q2

REPORT INFORMATION
  Report Type: Spontaneous
  Country: FR (occurrence: FR)
  Receive Date: 20230619
  Receipt Date: 20230619
  Transmission Date: 20230722
  Serious: Yes (Hospitalization)
  Sender: FDA-Public Use
  Company Number: FR-AMGEN-FRASP2022229856

PATIENT
  Age: 61 Year
  Sex: Male
  Weight: 55 kg

DRUGS (7)
  1. LUMAKRAS [Suspect]
     Active Substance: SOTORASIB
     Indication: Lung neoplasm malignant
     Dosage: 8 DOSAGE FORM, QD (120 MG)
     Route: 048
     Dates: start: 20220530
  2. ELIQUIS [Concomitant]
     Active Substance: APIXABAN
     Indication: Venous thrombosis
     Dosage: 10 MILLIGRAM, QD
     Dates: start: 20220619
  3. FIASP [Concomitant]
     Active Substance: INSULIN ASPART
     Indication: Ketosis-prone diabetes mellitus
     Dosage: 100 UNITS/ML, SOLUTION FOR INJECTION IN VIAL
  4. INSULIN ASPART [Concomitant]
     Active Substance: INSULIN ASPART
     Dosage: 2 DOSAGE FORM, QD (YEAST/SACCHAROMYCES CEREVISIAE)
  5. DOLIPRANE [Concomitant]
     Active Substance: ACETAMINOPHEN
     Indication: Pain
     Dosage: 1000 MILLIGRAM
  6. TRESIBA [Concomitant]
     Active Substance: INSULIN DEGLUDEC
     Dosage: 100 UNITS/ML, SOLUTION FOR INJECTION IN PREFILLED PENPRE-FILLED
  7. INSULIN DEGLUDEC [Concomitant]
     Active Substance: INSULIN DEGLUDEC
     Indication: Ketosis-prone diabetes mellitus
     Dosage: 1 DOSAGE FORM, QD

REACTIONS (1)
  - Ischaemic stroke [Recovered/Resolved]

NARRATIVE: CASE EVENT DATE: 20220617
